FAERS Safety Report 6307120-5 (Version None)
Quarter: 2009Q3

REPORT INFORMATION
  Report Type: 
  Country: None (occurrence: None)
  Receive Date: 20090812
  Receipt Date: 20090806
  Transmission Date: 20100115
  Serious: Yes (Hospitalization)
  Sender: FDA-Public Use
  Company Number: US-GILEAD-2009-0023564

PATIENT
  Sex: Female

DRUGS (16)
  1. LETAIRIS [Suspect]
     Indication: PULMONARY ARTERIAL HYPERTENSION
     Route: 048
     Dates: start: 20080502
  2. REVATIO [Concomitant]
  3. LASIX [Concomitant]
  4. ZAROXOLYN [Concomitant]
  5. ALDACTONE [Concomitant]
  6. PREDNISONE [Concomitant]
  7. IMURAN [Concomitant]
     Dates: start: 20090801
  8. ADVAIR DISKU [Concomitant]
  9. IPRATROPIUM ALBUTER [Concomitant]
  10. POTASSIUM CHLORIDE [Concomitant]
     Dates: start: 20090801
  11. SULFASALAZIN [Concomitant]
     Dates: start: 20081101
  12. CITALOPRAM HYDROBROMIDE [Concomitant]
  13. OMEPRAZOLE [Concomitant]
  14. MAGNESIUM-OX [Concomitant]
     Dates: start: 20090801
  15. VITAMIN A [Concomitant]
  16. VITAMIN D [Concomitant]

REACTIONS (3)
  - DYSPNOEA [None]
  - OEDEMA PERIPHERAL [None]
  - PNEUMONIA [None]
